FAERS Safety Report 4303611-7 (Version None)
Quarter: 2004Q1

REPORT INFORMATION
  Report Type: 
  Country: None (occurrence: None)
  Receive Date: 20040225
  Receipt Date: 20040120
  Transmission Date: 20041129
  Serious: Yes (Hospitalization)
  Sender: FDA-Public Use
  Company Number: GB-BRISTOL-MYERS SQUIBB COMPANY-12482725

PATIENT
  Age: 67 Year
  Sex: Female

DRUGS (5)
  1. PACLITAXEL [Suspect]
     Route: 042
     Dates: start: 20030508, end: 20030508
  2. CARBOPLATIN [Suspect]
     Route: 042
     Dates: start: 20030508, end: 20030508
  3. GEMCITABINE [Suspect]
     Dosage: GIVEN DAY 1 + 8, 3 WEEKLY
     Route: 042
     Dates: start: 20030403, end: 20030403
  4. NIFEDIPINE [Concomitant]
  5. CO-DYDRAMOL [Concomitant]
     Dosage: 10/500

REACTIONS (1)
  - WHOLE BLOOD TRANSFUSION [None]
